FAERS Safety Report 6327803-0 (Version None)
Quarter: 2009Q3

REPORT INFORMATION
  Report Type: 
  Country: None (occurrence: None)
  Receive Date: 20090824
  Receipt Date: 20090817
  Transmission Date: 20100115
  Serious: Yes (Hospitalization)
  Sender: FDA-Public Use
  Company Number: 2009AL002555

PATIENT
  Age: 51 Year
  Sex: Male

DRUGS (53)
  1. DIGOXIN [Suspect]
     Dosage: PO
     Route: 048
     Dates: start: 20040101
  2. LISINOPRIL [Concomitant]
  3. LASIX [Concomitant]
  4. COREG [Concomitant]
  5. COUMADIN [Concomitant]
  6. ASPIRIN [Concomitant]
  7. TRICOR [Concomitant]
  8. COZAAR [Concomitant]
  9. NORVASC [Concomitant]
  10. ASMANEX TWISTHALER [Concomitant]
  11. COMBIVENT [Concomitant]
  12. ADVAIR HFA [Concomitant]
  13. ASPIRIN [Concomitant]
  14. ZETIA [Concomitant]
  15. VIAGRA [Concomitant]
  16. TESTIM [Concomitant]
  17. AMLODIPINE [Concomitant]
  18. FUROSEMIDE [Concomitant]
  19. AZITHROMYCIN [Concomitant]
  20. CYCLOBENZAPRINE [Concomitant]
  21. CLOTRIMAZOLE-BETAMITHASONE [Concomitant]
  22. CARVEDILOL [Concomitant]
  23. MUSE [Concomitant]
  24. CIALIS [Concomitant]
  25. LEVITRA [Concomitant]
  26. ANDROGEL [Concomitant]
  27. WARFARIN SODIUM [Concomitant]
  28. TRAMADOL HCL [Concomitant]
  29. GUAIFENESIN [Concomitant]
  30. AEROBID [Concomitant]
  31. PROTONIX [Concomitant]
  32. ENTAB [Concomitant]
  33. BACTROBAN [Concomitant]
  34. TRIAMTERENE [Concomitant]
  35. SULFAMETHOXAZOLE AND TRIMETHOPRIM [Concomitant]
  36. AUGMENTIN [Concomitant]
  37. GUAIFENEX [Concomitant]
  38. CEPHALEXIN [Concomitant]
  39. CLOBETASOL PROPIONATE [Concomitant]
  40. ZOCOR [Concomitant]
  41. METRONIDAZOLE [Concomitant]
  42. PROPOXYPHENE HCL CAP [Concomitant]
  43. YOHIMBINE [Concomitant]
  44. ACCUPRIL [Concomitant]
  45. FLURBIPROFEN [Concomitant]
  46. KETOROLAC TROMETHAMINE [Concomitant]
  47. ROXILOX [Concomitant]
  48. GOLYTELY [Concomitant]
  49. TYLOX [Concomitant]
  50. TORADOL [Concomitant]
  51. DARVOCET [Concomitant]
  52. NAPOLEON [Concomitant]
  53. DYNABAC [Concomitant]

REACTIONS (14)
  - CARDIAC FAILURE [None]
  - CONGESTIVE CARDIOMYOPATHY [None]
  - ECONOMIC PROBLEM [None]
  - EJECTION FRACTION DECREASED [None]
  - HYPOTENSION [None]
  - INTRACARDIAC THROMBUS [None]
  - MITRAL VALVE INCOMPETENCE [None]
  - MULTIPLE INJURIES [None]
  - MYOCARDIAL ISCHAEMIA [None]
  - PULMONARY HYPERTENSION [None]
  - SURGERY [None]
  - TACHYCARDIA [None]
  - TACHYPNOEA [None]
  - TRICUSPID VALVE INCOMPETENCE [None]
